FAERS Safety Report 20852183 (Version 1)
Quarter: 2022Q2

REPORT INFORMATION
  Report Type: 
  Country: US (occurrence: US)
  Receive Date: 20220520
  Receipt Date: 20220520
  Transmission Date: 20220721
  Serious: No
  Sender: FDA-Public Use
  Company Number: US-BIOCON-BCN-2022-000082

PATIENT
  Sex: Female

DRUGS (2)
  1. EVEROLIMUS [Suspect]
     Active Substance: EVEROLIMUS
     Indication: Endometrial neoplasm
  2. EVEROLIMUS [Suspect]
     Active Substance: EVEROLIMUS
     Indication: Uterine cancer

REACTIONS (3)
  - Therapeutic product effect decreased [Unknown]
  - Product measured potency issue [Unknown]
  - Product use in unapproved indication [Unknown]
